FAERS Safety Report 12782422 (Version 1)
Quarter: 2016Q3

REPORT INFORMATION
  Report Type: Spontaneous
  Country: US (occurrence: US)
  Receive Date: 20160923
  Receipt Date: 20160923
  Transmission Date: 20161109
  Serious: Yes (Hospitalization)
  Sender: FDA-Public Use
  Company Number: None

PATIENT
  Age: 66 Year
  Sex: Female
  Weight: 80.1 kg

DRUGS (5)
  1. DOXORUBICIN HYDROCHLORIDE. [Suspect]
     Active Substance: DOXORUBICIN HYDROCHLORIDE
     Dates: end: 20160912
  2. CISPLATIN. [Suspect]
     Active Substance: CISPLATIN
     Dates: end: 20160912
  3. NEULASTA [Suspect]
     Active Substance: PEGFILGRASTIM
     Dates: end: 20160913
  4. METHOTREXATE. [Suspect]
     Active Substance: METHOTREXATE
     Dates: end: 20160912
  5. VINBLASTINE SULFATE. [Suspect]
     Active Substance: VINBLASTINE SULFATE
     Dates: end: 20160912

REACTIONS (9)
  - Alanine aminotransferase increased [None]
  - Neutropenia [None]
  - Perineal pain [None]
  - Oropharyngeal pain [None]
  - Dyspepsia [None]
  - Mucosal inflammation [None]
  - Blood urea increased [None]
  - Dehydration [None]
  - Faeces discoloured [None]

NARRATIVE: CASE EVENT DATE: 20160921
